FAERS Safety Report 8882206 (Version 2)
Quarter: 2012Q4

REPORT INFORMATION
  Report Type: Report from Study
  Country: US (occurrence: US)
  Receive Date: 20121105
  Receipt Date: 20121211
  Transmission Date: 20130627
  Serious: No
  Sender: FDA-Public Use
  Company Number: US-JNJFOC-20121017491

PATIENT
  Sex: Male
  Weight: 79.83 kg

DRUGS (3)
  1. REMICADE [Suspect]
     Indication: COLITIS ULCERATIVE
     Route: 042
     Dates: start: 2012
  2. PREDNISONE [Concomitant]
     Indication: COLITIS ULCERATIVE
     Route: 065
  3. ASACOL [Concomitant]
     Indication: COLITIS ULCERATIVE
     Route: 065

REACTIONS (2)
  - Candidiasis [Recovering/Resolving]
  - Cough [Not Recovered/Not Resolved]
